FAERS Safety Report 7163625-9 (Version None)
Quarter: 2010Q4

REPORT INFORMATION
  Report Type: 
  Country: None (occurrence: None)
  Receive Date: 20101215
  Receipt Date: 20100519
  Transmission Date: 20110411
  Serious: Yes (Disabling, Other)
  Sender: FDA-Public Use
  Company Number: US-PFIZER INC-2010063229

PATIENT
  Sex: Female
  Weight: 57 kg

DRUGS (11)
  1. LYRICA [Suspect]
     Indication: FIBROMYALGIA
     Dosage: 50 MG, 1X/DAY
     Route: 048
     Dates: start: 20070808, end: 20090911
  2. LYRICA [Suspect]
     Dosage: 50 MG, 2X/DAY
     Dates: start: 20090911, end: 20100507
  3. ELAVIL [Concomitant]
     Indication: IRRITABLE BOWEL SYNDROME
     Dosage: 150 MG, 1X/DAY
     Route: 048
  4. NIACIN [Concomitant]
     Indication: SUPPLEMENTATION THERAPY
     Dosage: 200 MG, UNK
  5. MAGNESIUM [Concomitant]
     Indication: SUPPLEMENTATION THERAPY
     Dosage: 200 MG, UNK
  6. METHYLSULFONYLMETHANE [Concomitant]
     Indication: SUPPLEMENTATION THERAPY
     Dosage: 2000 MG, 1X/DAY
  7. GLUCOSAMINE [Concomitant]
     Indication: SUPPLEMENTATION THERAPY
     Dosage: 500 MG, UNK
  8. CHONDROITIN [Concomitant]
     Indication: SUPPLEMENTATION THERAPY
     Dosage: 400 MG, UNK
  9. SELENIUM [Concomitant]
     Indication: SUPPLEMENTATION THERAPY
     Dosage: 200 MG, UNK
  10. FISH OIL [Concomitant]
     Indication: SUPPLEMENTATION THERAPY
     Dosage: 1000 MG, UNK
  11. LYSINE [Concomitant]
     Indication: SUPPLEMENTATION THERAPY
     Dosage: 500 MG, UNK

REACTIONS (7)
  - BLINDNESS UNILATERAL [None]
  - HYPOAESTHESIA [None]
  - INTRAOCULAR PRESSURE INCREASED [None]
  - OPTIC NERVE INJURY [None]
  - PARAESTHESIA [None]
  - PLANTAR FASCIITIS [None]
  - WEIGHT INCREASED [None]
